FAERS Safety Report 7336302-9 (Version None)
Quarter: 2011Q1

REPORT INFORMATION
  Report Type: 
  Country: None (occurrence: None)
  Receive Date: 20110307
  Receipt Date: 20110302
  Transmission Date: 20110831
  Serious: Yes (Other)
  Sender: FDA-Public Use
  Company Number: US-PFIZER INC-2011011739

PATIENT
  Sex: Male

DRUGS (1)
  1. VFEND [Suspect]

REACTIONS (3)
  - PULMONARY MYCOSIS [None]
  - BRONCHOPULMONARY ASPERGILLOSIS [None]
  - CHRONIC GRANULOMATOUS DISEASE [None]
